FAERS Safety Report 5363094-5 (Version None)
Quarter: 2007Q2

REPORT INFORMATION
  Report Type: 
  Country: None (occurrence: None)
  Receive Date: 20070615
  Receipt Date: 20070605
  Transmission Date: 20071010
  Serious: Yes (Death)
  Sender: FDA-Public Use
  Company Number: 2007JP002381

PATIENT
  Sex: Male
  Weight: 13 kg

DRUGS (21)
  1. PROGRAF [Suspect]
     Indication: CORD BLOOD TRANSPLANT THERAPY
     Dosage: 0.02 MG/KG, CONTINUOUS, IV DRIP
     Route: 041
  2. PROGRAF [Suspect]
     Indication: CORD BLOOD TRANSPLANT THERAPY
     Dosage: ORAL
     Route: 048
     Dates: end: 20031001
  3. CLEITON                   (HYDROCORTISONE SODIUM PHOSPHATE) INJECTION [Suspect]
     Dosage: 25 MG, QID, IV DRIP
     Route: 041
     Dates: start: 20031125, end: 20031210
  4. PREDNISILONE [Concomitant]
  5. MEYLON              (SODIUM BICARBONATE) INJECTION [Concomitant]
  6. LASIX                   (FUROSEMIDE) INJECTION [Concomitant]
  7. ALBUMIN               (ALBUMIN) INJECTION [Concomitant]
  8. KAYTWO N                   (MENATETRENONE) INJECTION [Concomitant]
  9. KADODIN                          (DOPAMINE HYDROCHLORIDE) INJECTION [Concomitant]
  10. CALCICOL          (CALCIUM GLUCONATE) INJECTION [Concomitant]
  11. PERDIPINE                  (NICARDIPINE HYDROCHLORIDE) INJECTION [Concomitant]
  12. HORIZON        (DIAZEPAM) INJECTION [Concomitant]
  13. DORMICUM             (MIDAZOLAM) INJECTION [Concomitant]
  14. ANTHROBIN P (ANTITHROMBIN III) INJECTION [Concomitant]
  15. CEFOPERAZIN (CEFOPERAZONE SODIUM) INJECTION [Concomitant]
  16. VENOGLOBULIN [Concomitant]
  17. ARASENA A            (VIDARABINE) INJECTION [Concomitant]
  18. ADONA                          (CARBAZOCHROME SODIUM SULFONATE) INJECT [Concomitant]
  19. PANABATE                      (GABEXATE MESILATE) INJECTION [Concomitant]
  20. SOL MEDROL                   (METHYLPREDNISOLONE, SUCCINATE SODIUM) IN [Concomitant]
  21. PREDONINE (PREDNISOLONE SODIUM SUCCINATE) INJECTION [Concomitant]

REACTIONS (1)
  - ADENOVIRUS INFECTION [None]
